FAERS Safety Report 5385703-7 (Version None)
Quarter: 2007Q3

REPORT INFORMATION
  Report Type: 
  Country: None (occurrence: None)
  Receive Date: 20070712
  Receipt Date: 20070704
  Transmission Date: 20080115
  Serious: Yes (Hospitalization)
  Sender: FDA-Public Use
  Company Number: HQWYE906905JUL07

PATIENT
  Age: 60 Year
  Sex: Male

DRUGS (6)
  1. INIPOMP [Suspect]
     Dosage: ^1/DAY 1 DF^
     Route: 048
     Dates: start: 20070417, end: 20070519
  2. NOVORAPID [Concomitant]
     Indication: TYPE 1 DIABETES MELLITUS
     Dosage: ^DF^
     Route: 045
     Dates: start: 20070516
  3. TACROLIMUS [Suspect]
     Dosage: ^DF^
     Route: 048
     Dates: start: 20070417, end: 20070530
  4. FUNGIZONE [Concomitant]
     Dosage: ^DF^
     Route: 048
     Dates: start: 20070417, end: 20070503
  5. DI-ANTALVIC [Suspect]
     Dosage: ^DF^
     Route: 048
     Dates: start: 20070510, end: 20070519
  6. TRIFLUCAN [Suspect]
     Dosage: ^1/DAY 1 DF^
     Route: 048
     Dates: start: 20070417, end: 20070501

REACTIONS (6)
  - ANAEMIA [None]
  - BLOOD ALKALINE PHOSPHATASE INCREASED [None]
  - C-REACTIVE PROTEIN INCREASED [None]
  - GAMMA-GLUTAMYLTRANSFERASE INCREASED [None]
  - LYMPHOCYTE COUNT DECREASED [None]
  - STEVENS-JOHNSON SYNDROME [None]
